FAERS Safety Report 6207537-3 (Version None)
Quarter: 2009Q2

REPORT INFORMATION
  Report Type: 
  Country: None (occurrence: None)
  Receive Date: 20090528
  Receipt Date: 20090520
  Transmission Date: 20091009
  Serious: Yes (Other)
  Sender: FDA-Public Use
  Company Number: GB-BAXTER-2009BH008305

PATIENT
  Sex: Male

DRUGS (1)
  1. SODIUM LACTATE 1/6 MOLAR [Suspect]
     Indication: SURGERY
     Route: 065

REACTIONS (1)
  - BLOOD PRESSURE DECREASED [None]
